FAERS Safety Report 19487052 (Version 1)
Quarter: 2021Q3

REPORT INFORMATION
  Report Type: Spontaneous
  Country: US (occurrence: US)
  Receive Date: 20210702
  Receipt Date: 20210702
  Transmission Date: 20211014
  Serious: No
  Sender: FDA-Public Use
  Company Number: US-BAYER-2021-163821

PATIENT
  Sex: Female

DRUGS (1)
  1. STIVARGA [Suspect]
     Active Substance: REGORAFENIB
     Dosage: UNK

REACTIONS (6)
  - Stomatitis [Not Recovered/Not Resolved]
  - Furuncle [Not Recovered/Not Resolved]
  - Adverse event [None]
  - Toothache [None]
  - Lymphadenopathy [Not Recovered/Not Resolved]
  - Arthralgia [None]

NARRATIVE: CASE EVENT DATE: 20210615
